FAERS Safety Report 4562713-0 (Version None)
Quarter: 2005Q1

REPORT INFORMATION
  Report Type: 
  Country: None (occurrence: None)
  Receive Date: 20050124
  Receipt Date: 20050110
  Transmission Date: 20050727
  Serious: Yes (Death)
  Sender: FDA-Public Use
  Company Number: MK200501-0091-1

PATIENT
  Age: 46 Year
  Sex: Female

DRUGS (6)
  1. METHADOSE [Suspect]
     Indication: DEPENDENCE
     Dosage: 110 TO 380 MG, DAILY
     Dates: start: 20020524, end: 20050101
  2. METHADOSE [Suspect]
     Indication: DEPENDENCE
     Dosage: 110 TO 380 MG, DAILY
     Route: 048
     Dates: start: 20020524, end: 20050101
  3. PROZAC [Concomitant]
  4. ADDERALL 5 [Concomitant]
  5. PREMARIN [Concomitant]
  6. NEURONTIN [Concomitant]

REACTIONS (3)
  - DRUG ABUSER [None]
  - OVERDOSE [None]
  - RENAL DISORDER [None]
